FAERS Safety Report 5403465-1 (Version None)
Quarter: 2007Q3

REPORT INFORMATION
  Report Type: 
  Country: None (occurrence: None)
  Receive Date: 20070730
  Receipt Date: 20070716
  Transmission Date: 20080115
  Serious: Yes (Other)
  Sender: FDA-Public Use
  Company Number: 26826

PATIENT
  Age: 60 Year
  Sex: Male

DRUGS (4)
  1. NICOTINIC ACID [Suspect]
  2. ATORVASTATIN CALCIUM [Suspect]
  3. METOPROLOL SUCCINATE [Concomitant]
  4. TRIAMTERENE AND HYDROCHLOROTHIAZIDE [Concomitant]

REACTIONS (3)
  - AMYOTROPHIC LATERAL SCLEROSIS [None]
  - BLOOD CREATINE PHOSPHOKINASE INCREASED [None]
  - DRUG INTERACTION [None]
